FAERS Safety Report 18512549 (Version 3)
Quarter: 2020Q4

REPORT INFORMATION
  Report Type: Spontaneous
  Country: US (occurrence: US)
  Receive Date: 20201117
  Receipt Date: 20201130
  Transmission Date: 20210114
  Serious: Yes (Hospitalization)
  Sender: FDA-Public Use
  Company Number: US-SA-2020SA321242

PATIENT

DRUGS (28)
  1. DIPHENHYDRAMINE. [Suspect]
     Active Substance: DIPHENHYDRAMINE
     Indication: EXTRAPYRAMIDAL DISORDER
     Dosage: 25 MG, QD
  2. CLONIDINE. [Concomitant]
     Active Substance: CLONIDINE
     Indication: AGGRESSION
  3. LITHIUM. [Concomitant]
     Active Substance: LITHIUM
     Indication: MOOD SWINGS
     Dosage: 300 MG, QD
  4. LITHIUM. [Concomitant]
     Active Substance: LITHIUM
     Dosage: 600 MG, BID
  5. LITHIUM. [Concomitant]
     Active Substance: LITHIUM
     Dosage: 300 MG DAILY AND 600 MG AT BEDTIME
  6. RISPERIDONE. [Suspect]
     Active Substance: RISPERIDONE
     Dosage: 2 MG, HS
  7. RISPERIDONE. [Suspect]
     Active Substance: RISPERIDONE
     Dosage: 3 UNK
  8. CLOZAPINE. [Suspect]
     Active Substance: CLOZAPINE
     Dosage: 125 MG, HS
  9. METFORMIN [Concomitant]
     Active Substance: METFORMIN HYDROCHLORIDE
     Indication: PROPHYLAXIS
     Dosage: 500 MG, QD, AT BREAKFAST
  10. DIVALPROEX [Suspect]
     Active Substance: DIVALPROEX SODIUM
     Indication: SCHIZOAFFECTIVE DISORDER BIPOLAR TYPE
     Dosage: 500 MG, QH
  11. DIVALPROEX [Suspect]
     Active Substance: DIVALPROEX SODIUM
     Dosage: 1250 MG, HS
  12. LURASIDONE [Concomitant]
     Active Substance: LURASIDONE
     Indication: PSYCHOTIC SYMPTOM
     Dosage: 60 MG, QD
  13. OLANZAPINE. [Concomitant]
     Active Substance: OLANZAPINE
     Route: 030
  14. RISPERIDONE. [Suspect]
     Active Substance: RISPERIDONE
     Dosage: 3 MG, QD
  15. SERTRALINE [Suspect]
     Active Substance: SERTRALINE HYDROCHLORIDE
     Indication: PSYCHOTIC SYMPTOM
     Dosage: 100 MG
  16. SERTRALINE [Suspect]
     Active Substance: SERTRALINE HYDROCHLORIDE
     Indication: DEPRESSIVE SYMPTOM
     Dosage: TAPERED
  17. CLOZAPINE. [Suspect]
     Active Substance: CLOZAPINE
     Dosage: 100 MG, BID
  18. RISPERIDONE. [Suspect]
     Active Substance: RISPERIDONE
     Dosage: 4 MG, HS
  19. DIPHENHYDRAMINE. [Suspect]
     Active Substance: DIPHENHYDRAMINE
     Dosage: 50 MG, HS
  20. CLOZAPINE. [Suspect]
     Active Substance: CLOZAPINE
     Dosage: CLOZAPINE 100 MG DAILY AND 125 MG AT BEDTIME
  21. CLONIDINE. [Concomitant]
     Active Substance: CLONIDINE
     Indication: PSYCHOTIC SYMPTOM
     Dosage: 0.1 MG, HS
  22. LORAZEPAM. [Concomitant]
     Active Substance: LORAZEPAM
     Indication: ANXIETY
     Dosage: UNK UNK, PRN
  23. RISPERIDONE. [Suspect]
     Active Substance: RISPERIDONE
     Dosage: DOSE WAS GRADUALLY DECREASED
  24. CLOZAPINE. [Suspect]
     Active Substance: CLOZAPINE
     Indication: SCHIZOAFFECTIVE DISORDER BIPOLAR TYPE
     Dosage: 25 MG, HS
  25. RISPERIDONE. [Suspect]
     Active Substance: RISPERIDONE
     Indication: PSYCHOTIC SYMPTOM
     Dosage: 1 MG, BID
  26. RISPERIDONE. [Suspect]
     Active Substance: RISPERIDONE
     Dosage: 2 MG,BID
  27. CLOZAPINE. [Suspect]
     Active Substance: CLOZAPINE
     Dosage: TITRATED SLOWLY UPWARD
  28. NAPROXEN. [Concomitant]
     Active Substance: NAPROXEN
     Indication: PAIN
     Dosage: UNK, PRN

REACTIONS (12)
  - Off label use [Unknown]
  - Toxicity to various agents [Unknown]
  - Salivary hypersecretion [Recovered/Resolved]
  - Mania [Unknown]
  - Dry mouth [Recovered/Resolved]
  - Retching [Unknown]
  - Akathisia [Unknown]
  - Mental status changes [Unknown]
  - Insomnia [Unknown]
  - Musculoskeletal stiffness [Unknown]
  - Restlessness [Unknown]
  - Catatonia [Recovered/Resolved]
